FAERS Safety Report 8343780-5 (Version None)
Quarter: 2012Q2

REPORT INFORMATION
  Report Type: 
  Country: None (occurrence: None)
  Receive Date: 20120508
  Receipt Date: 20120501
  Transmission Date: 20120825
  Serious: Yes (Hospitalization)
  Sender: FDA-Public Use
  Company Number: PL-AMGEN-POLSP2012016029

PATIENT
  Age: 32 Year
  Sex: Female
  Weight: 51 kg

DRUGS (7)
  1. FUROSEMIDE [Concomitant]
     Indication: POLYURIA
     Dosage: 40 MG, BID
     Route: 048
     Dates: start: 20081125
  2. ALFADIOL [Concomitant]
     Dosage: 10 MUG, QOD
     Route: 048
     Dates: start: 20090408
  3. ARANESP [Suspect]
     Indication: PRODUCT USED FOR UNKNOWN INDICATION
     Dosage: 100 MUG, QWK
     Dates: start: 20081025
  4. ARANESP [Suspect]
     Dosage: 100 MG, QWK
     Route: 058
     Dates: start: 20081025, end: 20111101
  5. BIOFER [Concomitant]
     Indication: BLOOD IRON DECREASED
     Dosage: 350 MG, BID
     Route: 048
     Dates: start: 20081125
  6. KALIPOZ PROLONGATE [Concomitant]
     Dosage: UNK
     Route: 048
     Dates: start: 20081125, end: 20100225
  7. CALPEROS [Concomitant]
     Indication: BLOOD POTASSIUM INCREASED
     Dosage: 1.0 G, UNK
     Route: 048
     Dates: start: 20081125

REACTIONS (4)
  - HEPATITIS C [None]
  - RETICULOCYTE COUNT DECREASED [None]
  - DRUG RESISTANCE [None]
  - ANAEMIA [None]
